FAERS Safety Report 7038617-0 (Version None)
Quarter: 2010Q4

REPORT INFORMATION
  Report Type: 
  Country: None (occurrence: None)
  Receive Date: 20101011
  Receipt Date: 20101006
  Transmission Date: 20110411
  Serious: No
  Sender: FDA-Public Use
  Company Number: US-PFIZER INC-2010127263

PATIENT
  Age: 85 Year
  Sex: Female
  Weight: 91 kg

DRUGS (5)
  1. LIPITOR [Suspect]
     Indication: HIGH DENSITY LIPOPROTEIN ABNORMAL
     Dosage: UNK
     Route: 048
     Dates: end: 20100901
  2. LIPITOR [Suspect]
     Indication: LOW DENSITY LIPOPROTEIN ABNORMAL
  3. THYROID TAB [Concomitant]
     Indication: THYROID DISORDER
     Dosage: UNK
     Route: 048
  4. NORVASC [Concomitant]
     Dosage: UNK
     Route: 048
     Dates: start: 20100101
  5. FOSAMAX [Concomitant]
     Indication: BONE DISORDER
     Route: 048

REACTIONS (1)
  - MUSCLE SPASMS [None]
